FAERS Safety Report 25406452 (Version 1)
Quarter: 2025Q2

REPORT INFORMATION
  Report Type: Spontaneous
  Country: US (occurrence: US)
  Receive Date: 20250606
  Receipt Date: 20250606
  Transmission Date: 20250716
  Serious: Yes (Other)
  Sender: FERRING
  Company Number: US-FERRINGPH-2025FE01870

PATIENT

DRUGS (1)
  1. REBYOTA [Suspect]
     Active Substance: DONOR HUMAN STOOL
     Indication: Product used for unknown indication
     Route: 065

REACTIONS (3)
  - Constipation [Not Recovered/Not Resolved]
  - Mucous stools [Unknown]
  - Anal incontinence [Unknown]
